FAERS Safety Report 22127947 (Version 1)
Quarter: 2023Q1

REPORT INFORMATION
  Report Type: Spontaneous
  Country: US (occurrence: US)
  Receive Date: 20230323
  Receipt Date: 20230323
  Transmission Date: 20230418
  Serious: No
  Sender: FDA-Public Use
  Company Number: US-UNITED THERAPEUTICS-UNT-2023-007920

PATIENT
  Sex: Female
  Weight: 87.982 kg

DRUGS (5)
  1. REMODULIN [Suspect]
     Active Substance: TREPROSTINIL
     Indication: Pulmonary arterial hypertension
     Dosage: 0.064 ?G/KG, CONTINUING
     Route: 041
  2. REMODULIN [Suspect]
     Active Substance: TREPROSTINIL
     Dosage: UNK, CONTINUING
     Route: 041
  3. REMODULIN [Suspect]
     Active Substance: TREPROSTINIL
     Dosage: UNK UNK, CONTINUING
     Route: 041
     Dates: start: 20170220
  4. REVATIO [Concomitant]
     Active Substance: SILDENAFIL CITRATE
     Indication: Product used for unknown indication
     Route: 065
  5. TRACLEER [Concomitant]
     Active Substance: BOSENTAN
     Indication: Product used for unknown indication
     Route: 065

REACTIONS (3)
  - Nausea [Unknown]
  - Tremor [Unknown]
  - Product administration interrupted [Recovered/Resolved]
